FAERS Safety Report 10358358 (Version 2)
Quarter: 2015Q1

REPORT INFORMATION
  Report Type: Spontaneous
  Country: MX (occurrence: MX)
  Receive Date: 20140801
  Receipt Date: 20150204
  Transmission Date: 20150720
  Serious: Yes (Other)
  Sender: FDA-Public Use
  Company Number: MX-TAKEDA-2014TJP010052

PATIENT
  Age: 75 Year
  Sex: Male

DRUGS (2)
  1. ZACTOS (PIOGLITAZONE HYDROCHLORIDE) [Suspect]
     Active Substance: PIOGLITAZONE HYDROCHLORIDE
     Indication: DIABETES MELLITUS MANAGEMENT
     Dosage: 15 MG, QD
     Route: 065
  2. COMPETACT [Suspect]
     Active Substance: METFORMIN HYDROCHLORIDE\PIOGLITAZONE HYDROCHLORIDE
     Indication: DIABETES MELLITUS MANAGEMENT
     Dosage: UNK
     Route: 048

REACTIONS (1)
  - Prostate cancer [Unknown]
